FAERS Safety Report 9948750 (Version 2)
Quarter: 2014Q1

REPORT INFORMATION
  Report Type: Report from Study
  Country: US (occurrence: US)
  Receive Date: 20140303
  Receipt Date: 20140303
  Transmission Date: 20141002
  Serious: Yes (Other)
  Sender: FDA-Public Use
  Company Number: US-ABBVIE-13P-163-1055206-00

PATIENT
  Age: 50 Year
  Sex: Male

DRUGS (5)
  1. HUMIRA [Suspect]
     Indication: PSORIASIS
  2. ENBREL [Suspect]
     Indication: PRODUCT USED FOR UNKNOWN INDICATION
  3. NASOCORT [Concomitant]
     Indication: SEASONAL ALLERGY
  4. ATENOLOL [Concomitant]
     Indication: HYPERTENSION
     Dosage: NO DOSAGE X 10YEARS
  5. HYDROCHLORATHIAZIDE [Concomitant]
     Indication: PRODUCT USED FOR UNKNOWN INDICATION
     Dosage: NO DOSAGE X 10 YEARS

REACTIONS (5)
  - Arthrodesis [Unknown]
  - Drug ineffective [Not Recovered/Not Resolved]
  - Stem cell transplant [Unknown]
  - Nasopharyngitis [Not Recovered/Not Resolved]
  - Sinusitis [Unknown]
